FAERS Safety Report 10053689 (Version 3)
Quarter: 2014Q2

REPORT INFORMATION
  Report Type: Spontaneous
  Country: PL (occurrence: PL)
  Receive Date: 20140402
  Receipt Date: 20140410
  Transmission Date: 20141212
  Serious: Yes (Hospitalization)
  Sender: FDA-Public Use
  Company Number: PL-ABBVIE-12P-129-0891392-00

PATIENT
  Age: 30 Year
  Sex: Female

DRUGS (1)
  1. VALPROIC ACID [Suspect]
     Indication: CONVULSION

REACTIONS (3)
  - Onycholysis [Unknown]
  - Nail discolouration [Unknown]
  - Cyanosis [Unknown]
